FAERS Safety Report 11095705 (Version 2)
Quarter: 2015Q2

REPORT INFORMATION
  Report Type: Report from Study
  Country: CA (occurrence: CA)
  Receive Date: 20150507
  Receipt Date: 20150515
  Transmission Date: 20150821
  Serious: Yes (Hospitalization, Other)
  Sender: FDA-Public Use
  Company Number: CA-AMGEN-CANSL2015041739

PATIENT
  Age: 38 Year
  Sex: Male

DRUGS (5)
  1. 5-FU                               /00098801/ [Concomitant]
     Active Substance: FLUOROURACIL
     Indication: PANCREATIC CARCINOMA
     Dosage: UNK
  2. NEUPOGEN [Suspect]
     Active Substance: FILGRASTIM
     Indication: PROPHYLAXIS
     Dosage: 300 WEEKLY X 5 DOSES
     Route: 058
     Dates: start: 20150107
  3. FOLINIC ACID [Concomitant]
     Active Substance: LEUCOVORIN
     Indication: PANCREATIC CARCINOMA
     Dosage: UNK
  4. IRINOTECAN [Concomitant]
     Active Substance: IRINOTECAN
     Indication: PANCREATIC CARCINOMA
     Dosage: UNK
  5. OXALIPLATIN. [Concomitant]
     Active Substance: OXALIPLATIN
     Indication: PANCREATIC CARCINOMA
     Dosage: UNK

REACTIONS (3)
  - Sepsis [Unknown]
  - Pneumonia klebsiella [Not Recovered/Not Resolved]
  - Liver abscess [Not Recovered/Not Resolved]

NARRATIVE: CASE EVENT DATE: 20150327
